FAERS Safety Report 8590818-6 (Version None)
Quarter: 2012Q3

REPORT INFORMATION
  Report Type: 
  Country: None (occurrence: None)
  Receive Date: 20120813
  Receipt Date: 20120806
  Transmission Date: 20120928
  Serious: Yes (Other)
  Sender: FDA-Public Use
  Company Number: CA-BRISTOL-MYERS SQUIBB COMPANY-16803181

PATIENT
  Age: 68 Year
  Sex: Female

DRUGS (4)
  1. MORPHINE [Concomitant]
  2. TYLENOL W/ CODEINE NO. 3 [Concomitant]
  3. PREDNISONE TAB [Concomitant]
  4. ORENCIA [Suspect]
     Indication: RHEUMATOID ARTHRITIS
     Dosage: LAST DOSE: 22JUN2012,3AUG12 NO OF INF: 6
     Route: 042
     Dates: start: 20120330

REACTIONS (3)
  - ARTHROPATHY [None]
  - CHEST DISCOMFORT [None]
  - ASTHMA [None]
